FAERS Safety Report 7352807-9 (Version None)
Quarter: 2011Q1

REPORT INFORMATION
  Report Type: 
  Country: None (occurrence: None)
  Receive Date: 20110315
  Receipt Date: 20110228
  Transmission Date: 20110831
  Serious: Yes (Other)
  Sender: FDA-Public Use
  Company Number: PHHY2011JP18429

PATIENT
  Sex: Male
  Weight: 64 kg

DRUGS (21)
  1. PARIET [Concomitant]
     Dosage: 20 MG, UNK
     Route: 048
     Dates: start: 20091121, end: 20091127
  2. CARDENALIN [Concomitant]
     Dosage: 0.5 MG, UNK
     Route: 048
  3. URIEF [Concomitant]
     Dosage: 4 MG, UNK
     Route: 048
     Dates: start: 20090818
  4. ADALAT CC [Concomitant]
     Dosage: 60 MG, UNK
     Route: 048
     Dates: end: 20100610
  5. LASIX [Concomitant]
     Indication: HYPERTENSION
     Dosage: 20 MG, UNK
     Route: 048
     Dates: start: 20100219, end: 20100305
  6. DIOVAN [Suspect]
     Dosage: 80 MG, QD
     Route: 048
     Dates: start: 20090511, end: 20090526
  7. MAINTATE [Concomitant]
     Dosage: 2.5 MG, UNK
     Route: 048
     Dates: end: 20100526
  8. CARDENALIN [Concomitant]
     Indication: HYPERTENSION
     Dosage: 1 MG, UNK
     Route: 048
  9. ATELEC [Concomitant]
     Indication: HYPERTENSION
     Dosage: 20 MG, UNK
     Route: 048
     Dates: start: 20100611
  10. MAGLAX [Concomitant]
     Dosage: 250 MG, UNK
     Route: 048
     Dates: start: 20090331
  11. MAINTATE [Concomitant]
     Dosage: 5 MG, UNK
     Route: 048
     Dates: start: 20090624
  12. ADALAT CC [Concomitant]
     Indication: HYPERTENSION
     Dosage: 40 MG, UNK
     Route: 048
     Dates: start: 20090702
  13. DIOVAN [Suspect]
     Dosage: 160 MG, DAILY
     Route: 048
     Dates: start: 20090610
  14. MAINTATE [Concomitant]
     Indication: HYPERTENSION
     Dosage: 2.5 MG, UNK
     Route: 048
     Dates: start: 20090624
  15. CARDENALIN [Concomitant]
     Dosage: 1 MG, UNK
     Route: 048
     Dates: end: 20100122
  16. CLARITHROMYCIN [Concomitant]
     Dosage: 400 MG, UNK
     Route: 048
     Dates: start: 20091121, end: 20091127
  17. SAWACILLIN [Concomitant]
     Dosage: 1500 MG, UNK
     Route: 048
     Dates: start: 20091121, end: 20091127
  18. DIOVAN [Suspect]
     Dosage: 120 MG, DAILY
     Route: 048
     Dates: start: 20090527, end: 20090609
  19. CALBLOCK [Concomitant]
     Indication: HYPERTENSION
     Dosage: 16 MG, UNK
     Route: 048
     Dates: start: 20090411, end: 20090721
  20. PLETAL [Concomitant]
     Dosage: 200 MG, UNK
     Route: 048
     Dates: start: 20100319
  21. YODEL S [Concomitant]
     Dosage: 40 MG, UNK
     Route: 048
     Dates: start: 20090318

REACTIONS (9)
  - GASTRITIS ATROPHIC [None]
  - DYSPEPSIA [None]
  - ARTERIOSCLEROSIS OBLITERANS [None]
  - FATIGUE [None]
  - HELICOBACTER TEST POSITIVE [None]
  - DEHYDRATION [None]
  - INTESTINAL POLYP [None]
  - ILIAC ARTERY STENOSIS [None]
  - HAEMATOCHEZIA [None]
